FAERS Safety Report 6196763-8 (Version None)
Quarter: 2009Q2

REPORT INFORMATION
  Report Type: 
  Country: None (occurrence: None)
  Receive Date: 20090520
  Receipt Date: 20090515
  Transmission Date: 20091009
  Serious: Yes (Other)
  Sender: FDA-Public Use
  Company Number: US-ABBOTT-09P-163-0574159-00

PATIENT
  Sex: Female

DRUGS (8)
  1. HUMIRA [Suspect]
     Indication: RHEUMATOID ARTHRITIS
     Route: 058
  2. BUSPIRONE HCL [Concomitant]
     Indication: ANXIETY
     Dosage: 1.5 TABS DAILY
     Route: 048
  3. LEXAPRO [Concomitant]
     Indication: ANXIETY
     Dosage: 1.5 TABS DAILY
     Route: 048
  4. LEVOTHYROXINE SODIUM [Concomitant]
     Indication: HYPOTHYROIDISM
     Route: 048
  5. METHADONE [Concomitant]
     Indication: PAIN
     Route: 048
  6. LORAZEPAM [Concomitant]
     Indication: ANXIETY
     Route: 048
  7. DIOVAN HCT [Concomitant]
     Indication: HYPERTENSION
     Dosage: 160/12.5 DAILY
     Route: 048
  8. NITROGLYCERIN [Concomitant]
     Indication: CHEST PAIN
     Route: 060

REACTIONS (7)
  - CONSTIPATION [None]
  - DIARRHOEA [None]
  - EXTRASYSTOLES [None]
  - NAUSEA [None]
  - PAIN [None]
  - SLEEP APNOEA SYNDROME [None]
  - VEIN DISORDER [None]
